FAERS Safety Report 6920837-4 (Version None)
Quarter: 2010Q3

REPORT INFORMATION
  Report Type: 
  Country: None (occurrence: None)
  Receive Date: 20100812
  Receipt Date: 20100805
  Transmission Date: 20110219
  Serious: Yes (Other)
  Sender: FDA-Public Use
  Company Number: CA-ALLERGAN-1010231US

PATIENT
  Age: 72 Year
  Sex: Male

DRUGS (8)
  1. BOTOX [Suspect]
     Indication: PRODUCT USED FOR UNKNOWN INDICATION
     Dosage: 18 UNITS, SINGLE
     Route: 030
  2. CLONAZEPAM [Concomitant]
  3. PERINDOPRIL ERBUMINE [Concomitant]
  4. FLOMAX [Concomitant]
  5. FOLIC ACID [Concomitant]
  6. PROPRANOLOL [Concomitant]
  7. SELENIUM [Concomitant]
  8. WARFARIN [Concomitant]

REACTIONS (6)
  - CHOKING [None]
  - DRUG INEFFECTIVE [None]
  - DYSPHAGIA [None]
  - MOTOR DYSFUNCTION [None]
  - MUSCULAR WEAKNESS [None]
  - TREMOR [None]
